FAERS Safety Report 7293370-0 (Version None)
Quarter: 2011Q1

REPORT INFORMATION
  Report Type: 
  Country: None (occurrence: None)
  Receive Date: 20110215
  Receipt Date: 20110204
  Transmission Date: 20110831
  Serious: Yes (Hospitalization, Other)
  Sender: FDA-Public Use
  Company Number: NO-TEVA-264200ISR

PATIENT
  Sex: Male

DRUGS (6)
  1. ONDANSETRON [Concomitant]
     Route: 042
     Dates: start: 20080515, end: 20080518
  2. OXALIPLATIN [Suspect]
     Route: 042
     Dates: start: 20080515, end: 20080515
  3. FLUOROURACIL [Suspect]
     Route: 042
     Dates: start: 20080515, end: 20080516
  4. DEXAMETHASONE [Suspect]
     Route: 042
     Dates: start: 20080515, end: 20080516
  5. PEGFILGRASTIM [Suspect]
     Indication: GASTROINTESTINAL CARCINOMA
     Route: 058
     Dates: start: 20080512, end: 20080517
  6. FOLINIC ACID [Suspect]
     Route: 065
     Dates: start: 20080515, end: 20080516

REACTIONS (3)
  - CHEST PAIN [None]
  - PULMONARY EMBOLISM [None]
  - DYSPNOEA [None]
